FAERS Safety Report 24259328 (Version 1)
Quarter: 2024Q3

REPORT INFORMATION
  Report Type: Spontaneous
  Country: US (occurrence: US)
  Receive Date: 20240828
  Receipt Date: 20240828
  Transmission Date: 20241016
  Serious: No
  Sender: TEVA
  Company Number: US-TEVA-VS-3233753

PATIENT
  Age: 63 Year
  Sex: Female
  Weight: 64 kg

DRUGS (10)
  1. GABAPENTIN [Suspect]
     Active Substance: GABAPENTIN
     Indication: Product used for unknown indication
     Route: 065
  2. AMITRIPTYLINE HCL CF [Concomitant]
     Indication: Product used for unknown indication
     Route: 065
  3. CELECOXIB LABESFAL [Concomitant]
     Indication: Product used for unknown indication
     Route: 065
  4. OXYBUTYNIN CHLORIDE [Concomitant]
     Active Substance: OXYBUTYNIN CHLORIDE
     Indication: Product used for unknown indication
     Route: 065
  5. RADICAVA [Concomitant]
     Active Substance: EDARAVONE
     Indication: Product used for unknown indication
     Dosage: ORS 105 MG/5ML ORAL SUSP
     Route: 065
  6. FELODIPINE EUROGENERICS [Concomitant]
     Indication: Product used for unknown indication
     Route: 065
  7. DULOXETINE CF [Concomitant]
     Indication: Product used for unknown indication
     Route: 065
  8. Cyclobenzaprine er [Concomitant]
     Indication: Product used for unknown indication
     Route: 065
  9. Bupropion biomo [Concomitant]
     Indication: Product used for unknown indication
     Route: 065
  10. RELYVRIO [Suspect]
     Active Substance: SODIUM PHENYLBUTYRATE\TAURURSODIOL
     Indication: Amyotrophic lateral sclerosis
     Dosage: 1 SACHET ONCE DAILY FOR 3WKS
     Route: 048
     Dates: start: 20230111, end: 20230711

REACTIONS (10)
  - Diarrhoea [Recovered/Resolved]
  - Muscular weakness [Not Recovered/Not Resolved]
  - Asthenia [Not Recovered/Not Resolved]
  - Nerve compression [Not Recovered/Not Resolved]
  - Hypertonic bladder [Not Recovered/Not Resolved]
  - Product dose omission issue [Unknown]
  - Fatigue [Not Recovered/Not Resolved]
  - Intervertebral disc protrusion [Not Recovered/Not Resolved]
  - Weight decreased [Not Recovered/Not Resolved]
  - Drug ineffective [Unknown]

NARRATIVE: CASE EVENT DATE: 20230101
